FAERS Safety Report 4598664-5 (Version None)
Quarter: 2005Q1

REPORT INFORMATION
  Report Type: 
  Country: None (occurrence: None)
  Receive Date: 20050304
  Receipt Date: 20050225
  Transmission Date: 20050727
  Serious: Yes (Death)
  Sender: FDA-Public Use
  Company Number: NO-MERCK-0503NOR00004

PATIENT
  Age: 55 Year
  Sex: Male

DRUGS (3)
  1. VIOXX [Suspect]
     Indication: MUSCULOSKELETAL PAIN
     Route: 048
     Dates: start: 20031106
  2. MESALAMINE [Concomitant]
     Indication: COLITIS ULCERATIVE
     Route: 065
  3. ACETAMINOPHEN [Concomitant]
     Route: 065

REACTIONS (1)
  - CARDIAC FAILURE CONGESTIVE [None]
